FAERS Safety Report 13444469 (Version 1)
Quarter: 2017Q2

REPORT INFORMATION
  Report Type: Spontaneous
  Country: US (occurrence: US)
  Receive Date: 20170414
  Receipt Date: 20170414
  Transmission Date: 20170830
  Serious: No
  Sender: FDA-Public Use
  Company Number: US-NOVOPROD-527758

PATIENT
  Age: 64 Year
  Sex: Female

DRUGS (1)
  1. TRESIBA [Suspect]
     Active Substance: INSULIN DEGLUDEC
     Indication: TYPE 2 DIABETES MELLITUS
     Route: 058
     Dates: start: 2016

REACTIONS (6)
  - Fatigue [Unknown]
  - Confusional state [Unknown]
  - Discomfort [Unknown]
  - Fibromyalgia [Unknown]
  - Feeling abnormal [Unknown]
  - Overweight [Unknown]

NARRATIVE: CASE EVENT DATE: 201604
